FAERS Safety Report 6649338-8 (Version None)
Quarter: 2010Q1

REPORT INFORMATION
  Report Type: 
  Country: None (occurrence: None)
  Receive Date: 20100322
  Receipt Date: 20100308
  Transmission Date: 20100710
  Serious: Yes (Other)
  Sender: FDA-Public Use
  Company Number: 20100111

PATIENT
  Age: 46 Year
  Sex: Male

DRUGS (2)
  1. FUROSEMIDE [Suspect]
     Indication: OEDEMA PERIPHERAL
     Dosage: INTRAVENOUS
     Route: 042
  2. UNSPECIFIED BETA-BOCKER [Suspect]

REACTIONS (6)
  - CARDIAC MURMUR [None]
  - HYPOVOLAEMIA [None]
  - LEFT VENTRICULAR HYPERTROPHY [None]
  - PERICARDIAL EFFUSION [None]
  - SINUS BRADYCARDIA [None]
  - SYNCOPE [None]
